FAERS Safety Report 7891962-9 (Version None)
Quarter: 2011Q4

REPORT INFORMATION
  Report Type: 
  Country: None (occurrence: None)
  Receive Date: 20111103
  Receipt Date: 20110812
  Transmission Date: 20120403
  Serious: No
  Sender: FDA-Public Use
  Company Number: US-AMGEN-USASP2011041125

PATIENT
  Age: 57 Year
  Sex: Female

DRUGS (1)
  1. ENBREL [Suspect]
     Indication: PSORIASIS
     Dosage: 50 MG, 2 TIMES/WK
     Dates: start: 20110411

REACTIONS (9)
  - MUSCLE TIGHTNESS [None]
  - SKIN LESION [None]
  - MUSCULOSKELETAL DISCOMFORT [None]
  - NECK PAIN [None]
  - MUSCULOSKELETAL PAIN [None]
  - JOINT STIFFNESS [None]
  - DYSPEPSIA [None]
  - SKIN HYPERTROPHY [None]
  - SKIN PLAQUE [None]
